FAERS Safety Report 9549110 (Version 1)
Quarter: 2013Q3

REPORT INFORMATION
  Report Type: Spontaneous
  Country: US (occurrence: US)
  Receive Date: 20130924
  Receipt Date: 20130924
  Transmission Date: 20140515
  Serious: Yes (Other)
  Sender: FDA-Public Use
  Company Number: US-TEVA-433814USA

PATIENT
  Age: 31 Year
  Sex: Female
  Weight: 95.34 kg

DRUGS (5)
  1. PARAGARD 380A [Suspect]
     Indication: CONTRACEPTION
     Route: 015
  2. CITALOPRAM [Concomitant]
     Indication: DEPRESSION
  3. BUPROPION [Concomitant]
     Indication: DEPRESSION
  4. ALLEGRA [Concomitant]
     Indication: HYPERSENSITIVITY
  5. MULTIVITAMIN [Concomitant]
     Indication: VITAMIN SUPPLEMENTATION

REACTIONS (3)
  - Device dislocation [Not Recovered/Not Resolved]
  - Pelvic pain [Unknown]
  - Device expulsion [Not Recovered/Not Resolved]
